FAERS Safety Report 12138032 (Version 1)
Quarter: 2016Q1

REPORT INFORMATION
  Report Type: Report from Study
  Country: US (occurrence: US)
  Receive Date: 20160302
  Receipt Date: 20160302
  Transmission Date: 20160526
  Serious: Yes (Other)
  Sender: FDA-Public Use
  Company Number: US-MYLANLABS-2016M1008837

PATIENT

DRUGS (5)
  1. GEMCITABINE [Suspect]
     Active Substance: GEMCITABINE\GEMCITABINE HYDROCHLORIDE
     Indication: NEOPLASM
     Dosage: 1000MG/M2; 28-DAY CYCLES OF GEMCITABINE ON DAYS 1, 8, 15
     Route: 065
  2. ALISERTIB [Suspect]
     Active Substance: ALISERTIB
     Indication: NEOPLASM
     Dosage: ON DAYS 1-3, 8-10, AND 15-17 IN A 28-DAY CYCLE
     Route: 048
  3. ALISERTIB [Suspect]
     Active Substance: ALISERTIB
     Dosage: ON DAYS 1-3, 8-10, AND 15-17 IN A 28-DAY CYCLE
     Route: 048
  4. ALISERTIB [Suspect]
     Active Substance: ALISERTIB
     Dosage: ON DAYS 1-3, 8-10, AND 15-17 IN A 28-DAY CYCLE
     Route: 048
  5. ALISERTIB [Suspect]
     Active Substance: ALISERTIB
     Dosage: ON DAYS 1-3, 8-10, AND 15-17 IN A 28-DAY CYCLE
     Route: 048

REACTIONS (3)
  - Hyponatraemia [Unknown]
  - Stomatitis [Unknown]
  - Dehydration [Unknown]
